FAERS Safety Report 7719470-6 (Version None)
Quarter: 2011Q3

REPORT INFORMATION
  Report Type: 
  Country: None (occurrence: None)
  Receive Date: 20110830
  Receipt Date: 20110819
  Transmission Date: 20111222
  Serious: Yes (Death, Other)
  Sender: FDA-Public Use
  Company Number: US-BAYER-201041748NA

PATIENT
  Age: 76 Year
  Sex: Female
  Weight: 81 kg

DRUGS (27)
  1. LASIX [Concomitant]
     Dosage: 80 MG, BID LONG TERM USE
     Route: 048
  2. DARVOCET [Concomitant]
     Dosage: EVERY 4 HOURS AS NEEDED FOR PAIN LONG TERM USE
     Route: 048
  3. PROTAMINE [Concomitant]
     Dosage: 350 MG, UNK
     Route: 042
     Dates: start: 19990122
  4. OMNIPAQUE 140 [Concomitant]
     Dosage: 110 ML, UNK
     Dates: start: 19990121
  5. TENORMIN [Concomitant]
     Dosage: 25 MG, BID LONG TERM USE
     Route: 048
  6. RED BLOOD CELLS, CONCENTRATED [Concomitant]
     Dosage: 1 U, ONCE
     Dates: start: 19990122, end: 19990122
  7. REZULIN [Concomitant]
     Dosage: 20 MG, QD LONG TERM USE
     Route: 048
  8. HEPARIN [Concomitant]
     Dosage: 25,000
     Route: 042
     Dates: start: 19990122
  9. PAVULON [Concomitant]
     Dosage: 20 MG, UNK
     Route: 042
     Dates: start: 19990122
  10. VANCOMYCIN [Concomitant]
     Dosage: 1 G, UNK
     Route: 042
     Dates: start: 19990122
  11. ACETYLSALICYLIC ACID SRT [Concomitant]
     Dosage: 325 MG, QD LONG TERM USE
     Route: 048
  12. AZULFIDINE [Concomitant]
     Dosage: 500 MG, QID LONG TERM USE
     Route: 048
  13. LASIX [Concomitant]
     Dosage: 40 MG, UNK
     Route: 042
     Dates: start: 19990122
  14. ZESTRIL [Concomitant]
     Dosage: 20 MG, QD LONG TERM USE
     Route: 048
  15. SOLU-MEDROL [Concomitant]
     Dosage: 200 MG, UNK
     Route: 042
     Dates: start: 19990122
  16. HEPARIN [Concomitant]
     Dosage: 5,000
     Route: 042
     Dates: start: 19990122
  17. CALCIUM CHLORIDE ANHYDROUS [Concomitant]
  18. TRASYLOL [Suspect]
     Dosage: TWO 1,000,000
     Route: 042
     Dates: start: 19990122
  19. DARVOCET [Concomitant]
  20. VERSED [Concomitant]
     Dosage: 30 MG, UNK
     Route: 042
     Dates: start: 19990122
  21. TRASYLOL [Suspect]
     Indication: CORONARY ARTERY BYPASS
     Dosage: 100 ML LOADING DOSE
     Route: 042
     Dates: start: 19990122
  22. IMDUR [Concomitant]
     Dosage: 30 MG, QD LONG TERM USE
     Route: 048
  23. HEPARIN [Concomitant]
     Dosage: 10,0000
     Route: 042
     Dates: start: 19990122
  24. TRASYLOL [Suspect]
     Dosage: TEST DOSE
     Dates: start: 19990122
  25. PLAVIX [Concomitant]
     Dosage: 75 MG, QD LONG TERM USE
     Route: 048
  26. MEVACOR [Concomitant]
     Dosage: 40 MG, QD LONG TERM USE
     Route: 048
  27. PREDNISONE [Concomitant]
     Dosage: 10 MG, QD LONG TERM USE
     Route: 048

REACTIONS (15)
  - RESPIRATORY FAILURE [None]
  - EMOTIONAL DISTRESS [None]
  - STRESS [None]
  - MULTI-ORGAN FAILURE [None]
  - RENAL FAILURE [None]
  - RENAL INJURY [None]
  - ANXIETY [None]
  - UNEVALUABLE EVENT [None]
  - FEAR [None]
  - DEATH [None]
  - CARDIAC ARREST [None]
  - RENAL FAILURE ACUTE [None]
  - RENAL IMPAIRMENT [None]
  - PAIN [None]
  - INJURY [None]
